FAERS Safety Report 7538326-5 (Version None)
Quarter: 2011Q2

REPORT INFORMATION
  Report Type: 
  Country: None (occurrence: None)
  Receive Date: 20110609
  Receipt Date: 20070308
  Transmission Date: 20111010
  Serious: Yes (Hospitalization, Disabling, Other)
  Sender: FDA-Public Use
  Company Number: PHHO2006VE15639

PATIENT
  Sex: Male

DRUGS (4)
  1. PLAVIX [Concomitant]
  2. DIOVAN HCT [Suspect]
     Indication: HYPERTENSION
     Dosage: 160/12.5
     Dates: start: 20000101
  3. BISOPROLOL FUMARATE [Concomitant]
  4. ATORVASTATIN [Concomitant]

REACTIONS (1)
  - CEREBROVASCULAR ACCIDENT [None]
